FAERS Safety Report 15293250 (Version 1)
Quarter: 2018Q3

REPORT INFORMATION
  Report Type: Spontaneous
  Country: GB (occurrence: GB)
  Receive Date: 20180820
  Receipt Date: 20180820
  Transmission Date: 20181010
  Serious: Yes (Other)
  Sender: FDA-Public Use
  Company Number: GB-TEVA-2018-GB-942437

PATIENT
  Age: 78 Year
  Sex: Female
  Weight: 53 kg

DRUGS (2)
  1. DOXYCYCLINE. [Suspect]
     Active Substance: DOXYCYCLINE
     Route: 065
     Dates: start: 20180710
  2. DIPROBASE [Concomitant]
     Active Substance: CHLOROCRESOL
     Dosage: APPLY
     Route: 065
     Dates: start: 20180424, end: 20180522

REACTIONS (2)
  - Chest discomfort [Recovered/Resolved]
  - Rash [Recovered/Resolved]

NARRATIVE: CASE EVENT DATE: 20180710
